FAERS Safety Report 5914407-4 (Version None)
Quarter: 2008Q4

REPORT INFORMATION
  Report Type: 
  Country: None (occurrence: None)
  Receive Date: 20081009
  Receipt Date: 20081001
  Transmission Date: 20090506
  Serious: Yes (Death, Hospitalization)
  Sender: FDA-Public Use
  Company Number: DE-AMGEN-US285060

PATIENT
  Sex: Female
  Weight: 74 kg

DRUGS (9)
  1. ENBREL [Suspect]
     Indication: RHEUMATOID ARTHRITIS
     Dosage: LYOPHILIZED, 25 MG TWO TIMES WEEKLY
     Route: 058
     Dates: start: 20070206, end: 20070904
  2. ALENDRONIC ACID [Concomitant]
     Indication: OSTEOPOROSIS
     Dosage: ONE TIME WEEKLY
     Route: 048
     Dates: start: 20070201
  3. SIMVASTATIN [Concomitant]
     Indication: HYPERLIPIDAEMIA
     Route: 048
     Dates: start: 20070201
  4. PREDNISOLONE [Concomitant]
     Indication: RHEUMATOID ARTHRITIS
     Route: 048
     Dates: start: 20070201
  5. DELIX [Concomitant]
     Indication: HYPERTENSION
     Route: 048
     Dates: start: 20070201
  6. DURAGESIC-100 [Concomitant]
     Dosage: UNKNOWN
     Route: 062
     Dates: start: 20070201
  7. CALCILAC [Concomitant]
     Indication: OSTEOPOROSIS
     Dosage: TWO TIMES DAILY
     Route: 048
     Dates: start: 20070201
  8. TOREM [Concomitant]
     Indication: HYPERTENSION
     Dosage: ONE TIME DAILY
     Route: 048
     Dates: start: 20070201
  9. INSULIN ACTRAPID HUMAN [Concomitant]
     Route: 065

REACTIONS (6)
  - CIRCULATORY COLLAPSE [None]
  - ENCEPHALOPATHY [None]
  - MULTI-ORGAN FAILURE [None]
  - RENAL FAILURE ACUTE [None]
  - RESPIRATORY FAILURE [None]
  - SEPSIS [None]
